FAERS Safety Report 16754001 (Version 1)
Quarter: 2019Q4

REPORT INFORMATION
  Report Type: Spontaneous
  Country: US (occurrence: US)
  Receive Date: 20190828
  Receipt Date: 20190828
  Transmission Date: 20200122
  Serious: No
  Sender: FDA-Public Use
  Company Number: None

PATIENT
  Age: 34 Year
  Sex: Female
  Weight: 83.25 kg

DRUGS (1)
  1. SUBOXONE [Suspect]
     Active Substance: BUPRENORPHINE HYDROCHLORIDE\NALOXONE HYDROCHLORIDE
     Indication: DRUG DEPENDENCE
     Dosage: ?          QUANTITY:1 FILM;?
     Route: 060
     Dates: start: 20190823

REACTIONS (6)
  - Oral pain [None]
  - Tongue discolouration [None]
  - Glossodynia [None]
  - Lymphadenopathy [None]
  - Stomatitis [None]
  - Mouth swelling [None]

NARRATIVE: CASE EVENT DATE: 20190826
